FAERS Safety Report 6186671-0 (Version None)
Quarter: 2009Q2

REPORT INFORMATION
  Report Type: 
  Country: None (occurrence: None)
  Receive Date: 20090512
  Receipt Date: 20090506
  Transmission Date: 20091009
  Serious: Yes (Hospitalization)
  Sender: FDA-Public Use
  Company Number: FR-BIOGENIDEC-2009BI013731

PATIENT
  Age: 32 Year
  Sex: Male

DRUGS (6)
  1. AVONEX [Suspect]
     Indication: MULTIPLE SCLEROSIS
     Route: 030
     Dates: start: 20081101, end: 20090330
  2. METHADONE [Concomitant]
     Indication: DRUG WITHDRAWAL MAINTENANCE THERAPY
     Dates: start: 20050101, end: 20080101
  3. METHADONE [Concomitant]
     Dates: start: 20080101, end: 20080801
  4. METHADONE [Concomitant]
     Dates: start: 20080801
  5. VALIUM [Concomitant]
  6. VITAMIN B COMPLEX CAP [Concomitant]

REACTIONS (2)
  - OEDEMA [None]
  - WEIGHT INCREASED [None]
